FAERS Safety Report 12486506 (Version 1)
Quarter: 2016Q2

REPORT INFORMATION
  Report Type: Spontaneous
  Country: DK (occurrence: FR)
  Receive Date: 20160621
  Receipt Date: 20160621
  Transmission Date: 20160815
  Serious: Yes (Life-Threatening, Hospitalization)
  Sender: FDA-Public Use
  Company Number: FR-FRI-1000085478

PATIENT
  Age: 52 Year
  Sex: Male

DRUGS (5)
  1. CLOPIXOL COMPRIM?S ENROB?S [Interacting]
     Active Substance: ZUCLOPENTHIXOL HYDROCHLORIDE
     Indication: PRODUCT USED FOR UNKNOWN INDICATION
     Route: 048
     Dates: start: 201002, end: 20160406
  2. THERALENE [Interacting]
     Active Substance: TRIMEPRAZINE
     Indication: PRODUCT USED FOR UNKNOWN INDICATION
     Dosage: 100 MG
     Route: 065
     Dates: start: 201410, end: 20160406
  3. ESCITALOPRAM [Suspect]
     Active Substance: ESCITALOPRAM OXALATE
     Indication: SCHIZOPHRENIA
     Dosage: 10 MG
     Route: 048
     Dates: start: 201410, end: 20160406
  4. SOLIAN [Interacting]
     Active Substance: AMISULPRIDE
     Indication: SCHIZOPHRENIA
     Dosage: 66.6667 MG
     Route: 048
     Dates: start: 201410, end: 20160406
  5. PARKINANE [Concomitant]
     Active Substance: TRIHEXYPHENIDYL HYDROCHLORIDE
     Route: 065

REACTIONS (6)
  - Product use issue [Unknown]
  - Cardiac arrest [Recovered/Resolved]
  - Torsade de pointes [Recovered/Resolved]
  - Electrocardiogram QT interval [Not Recovered/Not Resolved]
  - Drug interaction [Unknown]
  - Cardiovascular insufficiency [None]

NARRATIVE: CASE EVENT DATE: 201410
